FAERS Safety Report 8809152 (Version 1)
Quarter: 2012Q4

REPORT INFORMATION
  Report Type: 
  Country: IT (occurrence: IT)
  Receive Date: 20120926
  Receipt Date: 20120926
  Transmission Date: 20130627
  Serious: Yes (Hospitalization)
  Sender: FDA-Public Use
  Company Number: PHHY2012IT082508

PATIENT
  Age: 72 Year
  Sex: Female

DRUGS (6)
  1. TIZANIDINE [Suspect]
     Indication: JOINT CONTRACTURE
     Dosage: 2 mg, daily
     Route: 048
     Dates: start: 20120908
  2. PLAQUENIL [Concomitant]
     Dosage: 1 DF, UNK
     Dates: start: 20110418, end: 20120908
  3. CORDARONE [Concomitant]
     Dosage: 1 DF, UNK
     Dates: start: 20110915, end: 20120908
  4. REMERON [Concomitant]
     Dosage: 1 DF, UNK
     Dates: start: 20110915, end: 20120908
  5. EUTIROX [Concomitant]
     Dosage: 1 DF, UNK
     Dates: start: 20120309, end: 20120908
  6. LASIX [Concomitant]
     Dosage: 1 DF, UNK
     Dates: start: 20110915, end: 20120908

REACTIONS (1)
  - Laryngeal oedema [Recovered/Resolved]
